FAERS Safety Report 5315577-1 (Version None)
Quarter: 2007Q2

REPORT INFORMATION
  Report Type: 
  Country: None (occurrence: None)
  Receive Date: 20070503
  Receipt Date: 20070424
  Transmission Date: 20071010
  Serious: No
  Sender: FDA-Public Use
  Company Number: US-ELI_LILLY_AND_COMPANY-US200703002961

PATIENT
  Age: 15 Year
  Sex: Female

DRUGS (4)
  1. ZYPREXA [Suspect]
     Dosage: 15 MG, DAILY (1/D)
     Dates: start: 20061201
  2. SEROQUEL [Concomitant]
     Dosage: 600 MG, UNK
  3. TOPAMAX [Concomitant]
  4. RISPERDAL [Concomitant]

REACTIONS (1)
  - NO ADVERSE DRUG EFFECT [None]
